FAERS Safety Report 9331640 (Version 2)
Quarter: 2013Q2

REPORT INFORMATION
  Report Type: Spontaneous
  Country: GB (occurrence: GB)
  Receive Date: 20130605
  Receipt Date: 20130607
  Transmission Date: 20140414
  Serious: Yes (Other)
  Sender: FDA-Public Use
  Company Number: GB-PFIZER INC-2013169301

PATIENT
  Age: 20 Year
  Sex: Male

DRUGS (1)
  1. CHAMPIX [Suspect]
     Indication: SMOKING CESSATION THERAPY
     Dosage: INITIATION PACK WEEK 1
     Route: 048
     Dates: start: 20130514, end: 20130520

REACTIONS (2)
  - Speech disorder [Unknown]
  - Abnormal dreams [Unknown]
